FAERS Safety Report 24319321 (Version 5)
Quarter: 2025Q3

REPORT INFORMATION
  Report Type: Spontaneous
  Country: US (occurrence: US)
  Receive Date: 20240914
  Receipt Date: 20250810
  Transmission Date: 20251021
  Serious: No
  Sender: ALEXION PHARMACEUTICALS
  Company Number: 2024A206915

PATIENT
  Sex: Male

DRUGS (1)
  1. BYDUREON BCISE [Suspect]
     Active Substance: EXENATIDE
     Dosage: 2 MILLIGRAM, QW
     Route: 065

REACTIONS (7)
  - Blood glucose abnormal [Unknown]
  - Glycosylated haemoglobin abnormal [Unknown]
  - Drug dose omission by device [Unknown]
  - Drug ineffective [Unknown]
  - Device malfunction [Unknown]
  - Device leakage [Unknown]
  - Wrong technique in device usage process [Unknown]

NARRATIVE: CASE EVENT DATE: 20240901
